FAERS Safety Report 8018671-X (Version None)
Quarter: 2012Q1

REPORT INFORMATION
  Report Type: 
  Country: None (occurrence: None)
  Receive Date: 20120103
  Receipt Date: 20120103
  Transmission Date: 20120608
  Serious: Yes (Other)
  Sender: FDA-Public Use
  Company Number: None

PATIENT
  Age: 49 Year
  Sex: Female

DRUGS (1)
  1. METHOCARBAMOL [Suspect]
     Indication: MUSCLE RELAXANT THERAPY
     Dosage: 500 MG
     Route: 048
     Dates: start: 20111215, end: 20111225

REACTIONS (9)
  - PAIN IN EXTREMITY [None]
  - ILL-DEFINED DISORDER [None]
  - INSOMNIA [None]
  - RESTLESSNESS [None]
  - DRUG WITHDRAWAL SYNDROME [None]
  - HYPERHIDROSIS [None]
  - NERVOUSNESS [None]
  - DRUG DOSE OMISSION [None]
  - CHEST PAIN [None]
